FAERS Safety Report 10184756 (Version 1)
Quarter: 2014Q2

REPORT INFORMATION
  Report Type: Spontaneous
  Country: GB (occurrence: None)
  Receive Date: 20140519
  Receipt Date: 20140519
  Transmission Date: 20141212
  Serious: No
  Sender: FDA-Public Use
  Company Number: GB2014K1865SPO

PATIENT
  Age: 46 Year
  Sex: Male

DRUGS (2)
  1. LANSOPRAZOLE [Suspect]
     Dosage: 30 MG, UNK, UNKNOWN
  2. VENLAFAXINE [Suspect]
     Route: 048

REACTIONS (3)
  - Malabsorption [None]
  - Weight decreased [None]
  - Nonspecific reaction [None]
